FAERS Safety Report 6569840-7 (Version None)
Quarter: 2010Q1

REPORT INFORMATION
  Report Type: 
  Country: None (occurrence: None)
  Receive Date: 20100204
  Receipt Date: 20100104
  Transmission Date: 20100710
  Serious: No
  Sender: FDA-Public Use
  Company Number: US-BAYER-201010593BCC

PATIENT
  Age: 64 Year
  Sex: Female
  Weight: 67 kg

DRUGS (4)
  1. ALEVE [Suspect]
     Indication: MYALGIA
     Dosage: UNIT DOSE: 220 MG
     Route: 048
     Dates: start: 20090103
  2. ALEVE [Suspect]
     Dosage: AS USED: 220 MG  UNIT DOSE: 220 MG
     Route: 048
     Dates: start: 20090104
  3. XANAX [Concomitant]
     Route: 065
  4. BYSTOLIC [Concomitant]
     Route: 065

REACTIONS (1)
  - DIARRHOEA [None]
